FAERS Safety Report 6369828-5 (Version None)
Quarter: 2009Q3

REPORT INFORMATION
  Report Type: 
  Country: None (occurrence: None)
  Receive Date: 20090923
  Receipt Date: 20090917
  Transmission Date: 20100115
  Serious: Yes (Death, Hospitalization, Other)
  Sender: FDA-Public Use
  Company Number: US-ELI_LILLY_AND_COMPANY-US200908004502

PATIENT
  Sex: Female
  Weight: 66.667 kg

DRUGS (14)
  1. GEMZAR [Suspect]
     Indication: BREAST CANCER METASTATIC
     Dosage: 1000 MG/M2, UNK
     Route: 042
     Dates: start: 20081223, end: 20090630
  2. ADDERALL 10 [Concomitant]
     Dosage: 20 MG, UNK
  3. WELLBUTRIN XL [Concomitant]
     Dosage: 300 MG, UNK
  4. FOLIC ACID [Concomitant]
     Dosage: 1 MG, UNK
  5. LAMICTAL [Concomitant]
     Dosage: 200 MG, UNK
  6. COUMADIN [Concomitant]
     Dosage: 2 MG, UNK
  7. ALDACTONE [Concomitant]
     Dosage: 25 MG, UNK
  8. SKELAXIN [Concomitant]
     Dosage: 800 MG, UNK
  9. LASIX [Concomitant]
     Dosage: 40 MG, UNK
  10. ALEVE [Concomitant]
     Dosage: 220 MG, UNK
  11. MULTI-VITAMIN [Concomitant]
     Dosage: 1 D/F, UNK
  12. MIRALAX [Concomitant]
     Dosage: 17 G, UNK
  13. NEXIUM [Concomitant]
     Dosage: 40 MG, UNK
  14. LORAZEPAM [Concomitant]
     Dosage: 0.5 MG, UNK

REACTIONS (4)
  - DEATH [None]
  - GENERALISED OEDEMA [None]
  - PAPILLOEDEMA [None]
  - PLEURAL EFFUSION [None]
